FAERS Safety Report 5833956-0 (Version None)
Quarter: 2008Q3

REPORT INFORMATION
  Report Type: 
  Country: None (occurrence: None)
  Receive Date: 20080801
  Receipt Date: 20080801
  Transmission Date: 20090109
  Serious: Yes (Other)
  Sender: FDA-Public Use
  Company Number: None

PATIENT
  Age: 28 Year
  Sex: Female
  Weight: 90.7194 kg

DRUGS (5)
  1. TOPAMAX [Suspect]
     Indication: MIGRAINE
     Dosage: 200 MG ONCE DAILY PO
     Route: 048
  2. ZOLOFT [Concomitant]
  3. CLONAZEPAM [Concomitant]
  4. VARIOUS TRIPTANS [Concomitant]
  5. IBUPROFEN [Concomitant]

REACTIONS (2)
  - MEMORY IMPAIRMENT [None]
  - VISUAL IMPAIRMENT [None]
